FAERS Safety Report 5907881-0 (Version None)
Quarter: 2008Q4

REPORT INFORMATION
  Report Type: 
  Country: None (occurrence: None)
  Receive Date: 20081003
  Receipt Date: 20080925
  Transmission Date: 20090506
  Serious: Yes (Other)
  Sender: FDA-Public Use
  Company Number: GB-PFIZER INC-2008057640

PATIENT
  Sex: Female
  Weight: 70 kg

DRUGS (3)
  1. ESTRING [Suspect]
     Indication: MENOPAUSAL SYMPTOMS
     Route: 067
     Dates: start: 20080301, end: 20080701
  2. BENDROFLUMETHIAZIDE [Concomitant]
     Route: 048
  3. ROSUVASTATIN [Concomitant]
     Route: 048

REACTIONS (1)
  - TRANSIENT ISCHAEMIC ATTACK [None]
